FAERS Safety Report 8085551-3 (Version None)
Quarter: 2012Q1

REPORT INFORMATION
  Report Type: 
  Country: None (occurrence: None)
  Receive Date: 20120128
  Receipt Date: 20110422
  Transmission Date: 20120608
  Serious: No
  Sender: FDA-Public Use
  Company Number: US-ABBOTT-11P-163-0714687-00

PATIENT
  Sex: Female
  Weight: 55.842 kg

DRUGS (3)
  1. KEFLEX [Suspect]
     Indication: BRONCHITIS
     Dates: start: 20110318, end: 20110327
  2. HUMIRA [Suspect]
     Indication: CROHN'S DISEASE
     Dates: start: 20100101, end: 20110331
  3. KEFLEX [Suspect]
     Indication: EAR INFECTION

REACTIONS (11)
  - ABDOMINAL PAIN UPPER [None]
  - DIARRHOEA [None]
  - RASH [None]
  - HYPERSENSITIVITY [None]
  - SWELLING FACE [None]
  - UPPER RESPIRATORY TRACT INFECTION [None]
  - SWOLLEN TONGUE [None]
  - BRONCHITIS [None]
  - LIP SWELLING [None]
  - EAR INFECTION [None]
  - PRURITUS GENERALISED [None]
